FAERS Safety Report 12854888 (Version 2)
Quarter: 2017Q1

REPORT INFORMATION
  Report Type: Spontaneous
  Country: US (occurrence: US)
  Receive Date: 20161017
  Receipt Date: 20170306
  Transmission Date: 20170428
  Serious: Yes (Other)
  Sender: FDA-Public Use
  Company Number: US-BAYER-2016-198163

PATIENT
  Sex: Female

DRUGS (3)
  1. AVELOX [Suspect]
     Active Substance: MOXIFLOXACIN HYDROCHLORIDE
     Dosage: UNK
     Dates: start: 200712
  2. CIPRO [Suspect]
     Active Substance: CIPROFLOXACIN HYDROCHLORIDE
  3. LEVAQUIN [Suspect]
     Active Substance: LEVOFLOXACIN

REACTIONS (6)
  - Neuropathy peripheral [None]
  - Musculoskeletal disorder [None]
  - Cardiovascular disorder [None]
  - Nervous system disorder [None]
  - Mental disorder [None]
  - Skin disorder [None]

NARRATIVE: CASE EVENT DATE: 2008
